FAERS Safety Report 13964467 (Version 2)
Quarter: 2018Q1

REPORT INFORMATION
  Report Type: Report from Study
  Country: GB (occurrence: GB)
  Receive Date: 20170913
  Receipt Date: 20180316
  Transmission Date: 20180508
  Serious: Yes (Hospitalization)
  Sender: FDA-Public Use
  Company Number: GB-EMD SERONO-8180052

PATIENT
  Sex: Female

DRUGS (2)
  1. SAIZEN [Suspect]
     Active Substance: SOMATROPIN
     Indication: GROWTH HORMONE DEFICIENCY
     Route: 058
     Dates: start: 20080523
  2. SAIZEN [Suspect]
     Active Substance: SOMATROPIN
     Dosage: SAIZEN LIQUID 20 MILLIGRAM (8 MG/ML)
     Route: 058
     Dates: start: 20160725, end: 201712

REACTIONS (2)
  - Mobility decreased [Unknown]
  - Scoliosis [Recovering/Resolving]
